FAERS Safety Report 6368025-7 (Version None)
Quarter: 2009Q3

REPORT INFORMATION
  Report Type: 
  Country: None (occurrence: None)
  Receive Date: 20090922
  Receipt Date: 20090910
  Transmission Date: 20100115
  Serious: Yes (Life-Threatening, Hospitalization)
  Sender: FDA-Public Use
  Company Number: TH-ROCHE-516667

PATIENT
  Sex: Male
  Weight: 65 kg

DRUGS (33)
  1. METHOXY POLYETHYLENE GLYCOL-EPOETIN BETA [Suspect]
     Dosage: DOSAGE FORM REPORTED AS VIAL.
     Route: 058
     Dates: start: 20050901, end: 20050929
  2. METHOXY POLYETHYLENE GLYCOL-EPOETIN BETA [Suspect]
     Route: 058
     Dates: start: 20051027, end: 20060316
  3. METHOXY POLYETHYLENE GLYCOL-EPOETIN BETA [Suspect]
     Route: 058
     Dates: start: 20060415, end: 20060415
  4. METHOXY POLYETHYLENE GLYCOL-EPOETIN BETA [Suspect]
     Route: 058
     Dates: start: 20060511, end: 20060706
  5. METHOXY POLYETHYLENE GLYCOL-EPOETIN BETA [Suspect]
     Route: 058
     Dates: start: 20060803, end: 20061026
  6. METHOXY POLYETHYLENE GLYCOL-EPOETIN BETA [Suspect]
     Route: 058
     Dates: start: 20061128, end: 20070515
  7. METHOXY POLYETHYLENE GLYCOL-EPOETIN BETA [Suspect]
     Route: 058
     Dates: start: 20070614, end: 20070714
  8. METHOXY POLYETHYLENE GLYCOL-EPOETIN BETA [Suspect]
     Route: 058
     Dates: start: 20070814, end: 20070814
  9. METHOXY POLYETHYLENE GLYCOL-EPOETIN BETA [Suspect]
     Dosage: FORM: VIAL
     Route: 058
     Dates: start: 20070915
  10. METHOXY POLYETHYLENE GLYCOL-EPOETIN BETA [Suspect]
     Route: 058
  11. ISONIAZID [Suspect]
     Indication: TUBERCULOSIS
     Route: 065
     Dates: start: 20080226
  12. RIFAMPICIN [Suspect]
     Indication: TUBERCULOSIS
     Route: 065
     Dates: start: 20080226
  13. PYRAZINAMIDE [Suspect]
     Indication: TUBERCULOSIS
     Route: 065
     Dates: start: 20080226
  14. FOLIC ACID [Concomitant]
     Dates: start: 20021210
  15. ATORVASTATIN [Concomitant]
     Dosage: DRUG NAME REPORTED AS ATOVASTATIN.
     Dates: start: 20031106, end: 20080327
  16. LORAZEPAM [Concomitant]
     Dates: start: 20021210, end: 20080327
  17. CILOSTAZOL [Concomitant]
     Dates: start: 20050318
  18. CALCIUM ACETATE [Concomitant]
     Dates: start: 20050405
  19. CALCIUM ACETATE [Concomitant]
  20. CALCIUM ACETATE [Concomitant]
  21. CALCIUM ACETATE [Concomitant]
     Dates: start: 20050405, end: 20080327
  22. SENNOSIDES A + B [Concomitant]
     Dates: start: 20021210
  23. HEPARIN SODIUM [Concomitant]
     Dates: start: 20021210
  24. ENOXAPARIN NA [Concomitant]
     Dosage: DRUG NAME REPORTED AS: 'ENOXAPARIN NA IV BET HA'
     Dates: start: 20060413
  25. CLOPIDOGREL [Concomitant]
     Dates: start: 20070921, end: 20080327
  26. AMLODIPINE [Concomitant]
     Dates: start: 20070918
  27. ISOSORBIDE MONONITRATE [Concomitant]
     Dates: start: 20070913
  28. OLMESARTAN MEDOXOMIL [Concomitant]
     Dates: start: 20070913, end: 20080327
  29. ESOMEPRAZOLE [Concomitant]
     Dates: start: 20070913
  30. ASPIRIN [Concomitant]
     Dates: start: 20060223, end: 20080327
  31. BISOPROLOL FUMARATE [Concomitant]
     Dates: start: 20060707
  32. OMEPRAZOLE [Concomitant]
     Dates: start: 20070913
  33. SODA MINT [Concomitant]
     Dates: start: 20021210

REACTIONS (5)
  - ACUTE MYOCARDIAL INFARCTION [None]
  - CARDIAC FAILURE CONGESTIVE [None]
  - HEPATITIS [None]
  - PNEUMONIA [None]
  - TUBERCULOUS PLEURISY [None]
